FAERS Safety Report 16784110 (Version 1)
Quarter: 2019Q3

REPORT INFORMATION
  Report Type: Report from Study
  Country: None (occurrence: AR)
  Receive Date: 20190909
  Receipt Date: 20190909
  Transmission Date: 20191005
  Serious: Yes (Other)
  Sender: FDA-Public Use
  Company Number: AR-ABBVIE-19K-007-2915847-00

PATIENT
  Age: 70 Year
  Sex: Male

DRUGS (1)
  1. HUMIRA [Suspect]
     Active Substance: ADALIMUMAB
     Indication: PSORIASIS
     Route: 058
     Dates: start: 20190117, end: 2019

REACTIONS (2)
  - Renal neoplasm [Not Recovered/Not Resolved]
  - Orchitis noninfective [Not Recovered/Not Resolved]

NARRATIVE: CASE EVENT DATE: 201908
